FAERS Safety Report 15932820 (Version 2)
Quarter: 2019Q2

REPORT INFORMATION
  Report Type: Spontaneous
  Country: US (occurrence: US)
  Receive Date: 20190207
  Receipt Date: 20190423
  Transmission Date: 20190711
  Serious: No
  Sender: FDA-Public Use
  Company Number: US-MYLANLABS-2019M1006133

PATIENT
  Sex: Female
  Weight: 54 kg

DRUGS (1)
  1. ESTRADIOL VAGINAL CREAM USP [Suspect]
     Active Substance: ESTRADIOL
     Indication: URINARY TRACT INFECTION
     Dosage: UNK
     Route: 067

REACTIONS (3)
  - Off label use [Not Recovered/Not Resolved]
  - Urinary tract infection [Recovering/Resolving]
  - Device malfunction [Unknown]
